FAERS Safety Report 6822905-4 (Version None)
Quarter: 2010Q3

REPORT INFORMATION
  Report Type: 
  Country: None (occurrence: None)
  Receive Date: 20100708
  Receipt Date: 20100707
  Transmission Date: 20110219
  Serious: Yes (Other)
  Sender: FDA-Public Use
  Company Number: GXKR2010DE07483

PATIENT
  Sex: Female

DRUGS (1)
  1. CIPRO 1A PHARMA (NGX) [Suspect]
     Indication: PYELONEPHRITIS
     Dosage: 500 MG, BID
     Route: 048

REACTIONS (1)
  - HERPES ZOSTER [None]
